FAERS Safety Report 15404263 (Version 1)
Quarter: 2018Q3

REPORT INFORMATION
  Report Type: Spontaneous
  Country: US (occurrence: US)
  Receive Date: 20180919
  Receipt Date: 20180919
  Transmission Date: 20181010
  Serious: No
  Sender: FDA-Public Use
  Company Number: US-LANNETT COMPANY, INC.-US-2018LAN000978

PATIENT

DRUGS (1)
  1. LACTULOSE. [Suspect]
     Active Substance: LACTULOSE
     Indication: BOWEL MOVEMENT IRREGULARITY
     Dosage: 1 TABLESPOON, TID
     Route: 048
     Dates: start: 20171130, end: 20171204

REACTIONS (6)
  - Malaise [Unknown]
  - Blood glucose increased [Unknown]
  - Drug ineffective [Unknown]
  - Product colour issue [Unknown]
  - Tremor [Unknown]
  - Product taste abnormal [Unknown]

NARRATIVE: CASE EVENT DATE: 201711
